FAERS Safety Report 4788491-8 (Version None)
Quarter: 2005Q4

REPORT INFORMATION
  Report Type: 
  Country: None (occurrence: None)
  Receive Date: 20051005
  Receipt Date: 20050930
  Transmission Date: 20060501
  Serious: Yes (Hospitalization)
  Sender: FDA-Public Use
  Company Number: 2005PK01781

PATIENT
  Age: 9443 Day
  Sex: Male
  Weight: 73 kg

DRUGS (27)
  1. SEROQUEL [Suspect]
     Indication: PSYCHOTIC DISORDER
     Route: 048
     Dates: start: 20050809, end: 20050926
  2. STANGYL [Concomitant]
     Indication: INSOMNIA
     Dosage: 100 MG MAXIMAL DOSAGE
     Route: 048
     Dates: start: 20050718
  3. TAVOR [Concomitant]
     Indication: EXCITABILITY
     Route: 048
     Dates: start: 20050718
  4. TAVOR [Concomitant]
     Indication: RESTLESSNESS
     Route: 048
     Dates: start: 20050718
  5. FLUOXETINE HCL [Concomitant]
     Indication: DEPRESSION
     Route: 048
     Dates: start: 20050718
  6. ANAFRANIL [Concomitant]
     Route: 048
     Dates: start: 20050718
  7. CATAPRES [Concomitant]
     Indication: HYPERTENSION
     Route: 048
     Dates: start: 20050803, end: 20050808
  8. CIPROBAY [Concomitant]
     Indication: BRONCHITIS
     Route: 048
     Dates: start: 20050916, end: 20050924
  9. ACC [Concomitant]
     Indication: BRONCHITIS
     Route: 048
     Dates: start: 20050907, end: 20050922
  10. HALDOL [Concomitant]
     Indication: PSYCHIATRIC SYMPTOM
     Route: 048
     Dates: start: 20050922
  11. NYSTATIN [Concomitant]
     Indication: ORAL CANDIDIASIS
     Route: 048
     Dates: start: 20050922
  12. EDRONAX [Concomitant]
     Indication: DEPRESSION
     Route: 048
     Dates: start: 20050926
  13. DOMINAL [Concomitant]
     Indication: INSOMNIA
     Route: 048
     Dates: start: 20050718
  14. ZODURAT [Concomitant]
     Indication: INSOMNIA
     Route: 048
     Dates: start: 20050718
  15. CHLORADURAT [Concomitant]
     Indication: INSOMNIA
     Route: 048
     Dates: start: 20050718
  16. SEDONIUM [Concomitant]
     Indication: SLEEP DISORDER
     Route: 048
     Dates: start: 20050718
  17. ATOSIL [Concomitant]
     Indication: EXCITABILITY
     Route: 048
     Dates: start: 20050718
  18. ATOSIL [Concomitant]
     Indication: RESTLESSNESS
     Route: 048
     Dates: start: 20050718
  19. TAXILAN [Concomitant]
     Indication: RESTLESSNESS
     Route: 048
     Dates: start: 20050718
  20. DIPIPERON [Concomitant]
     Indication: ANXIETY
     Route: 048
     Dates: start: 20050718
  21. DIPIPERON [Concomitant]
     Indication: RESTLESSNESS
     Route: 048
     Dates: start: 20050718
  22. TRUXAL [Concomitant]
     Indication: RESTLESSNESS
     Route: 048
     Dates: start: 20050718
  23. DIMENHYDRINATE [Concomitant]
     Indication: NAUSEA
     Route: 048
     Dates: start: 20050718
  24. PROPRANOLOL HYDROCHLORIDE [Concomitant]
     Indication: TACHYCARDIA
     Route: 048
     Dates: start: 20050718
  25. ACETAMINOPHEN [Concomitant]
     Indication: HEADACHE
     Route: 048
     Dates: start: 20050718
  26. HEXORALLETTEN [Concomitant]
     Indication: PHARYNGOLARYNGEAL PAIN
     Route: 048
     Dates: start: 20050718
  27. AKINETON [Concomitant]
     Indication: EXTRAPYRAMIDAL DISORDER
     Route: 048
     Dates: start: 20050718

REACTIONS (2)
  - HEPATITIS C [None]
  - TRANSAMINASES INCREASED [None]
